FAERS Safety Report 5724709-2 (Version None)
Quarter: 2008Q2

REPORT INFORMATION
  Report Type: 
  Country: None (occurrence: None)
  Receive Date: 20080501
  Receipt Date: 20080422
  Transmission Date: 20081010
  Serious: Yes (Hospitalization)
  Sender: FDA-Public Use
  Company Number: US-ROCHE-560044

PATIENT
  Sex: Female
  Weight: 54.5 kg

DRUGS (10)
  1. KLONOPIN [Suspect]
     Indication: BIPOLAR DISORDER
     Route: 048
  2. TOPAMAX [Suspect]
     Indication: BIPOLAR DISORDER
     Route: 048
     Dates: start: 20060101, end: 20080314
  3. TRAZODONE HCL [Concomitant]
     Indication: BIPOLAR DISORDER
     Dosage: AT BED TIME
  4. ADDERALL 10 [Concomitant]
     Indication: BIPOLAR DISORDER
  5. ADDERALL 10 [Concomitant]
  6. PROZAC [Concomitant]
     Indication: BIPOLAR DISORDER
  7. PREVACID [Concomitant]
     Indication: GASTROOESOPHAGEAL REFLUX DISEASE
  8. COMBIVENT [Concomitant]
     Indication: ASTHMA
  9. COMBIVENT [Concomitant]
  10. PSYCHOTROPIC DRUG NOS [Concomitant]
     Dosage: DRUG REPORTED AS MULTIPLE PSYCHIATRIC MEDICATIONS

REACTIONS (3)
  - FATIGUE [None]
  - HYPOTENSION [None]
  - SYNCOPE [None]
